FAERS Safety Report 17648308 (Version 3)
Quarter: 2020Q2

REPORT INFORMATION
  Report Type: Report from Study
  Country: US (occurrence: US)
  Receive Date: 20200409
  Receipt Date: 20200603
  Transmission Date: 20200713
  Serious: Yes (Other)
  Sender: FDA-Public Use
  Company Number: NVSC2020US093984

PATIENT
  Age: 68 Year
  Sex: Male

DRUGS (1)
  1. ENTRESTO [Suspect]
     Active Substance: SACUBITRIL\VALSARTAN
     Indication: CARDIAC FAILURE
     Dosage: UNK UNK, BID
     Route: 048

REACTIONS (7)
  - Sleep disorder [Unknown]
  - Coronavirus infection [Unknown]
  - Hypoacusis [Unknown]
  - Dizziness [Unknown]
  - Asthenia [Unknown]
  - Product dose omission [Unknown]
  - Dyspnoea [Unknown]
